FAERS Safety Report 5497953-X (Version None)
Quarter: 2007Q4

REPORT INFORMATION
  Report Type: 
  Country: None (occurrence: None)
  Receive Date: 20071018
  Receipt Date: 20060822
  Transmission Date: 20080405
  Serious: Yes (Other)
  Sender: FDA-Public Use
  Company Number: 2006102117

PATIENT
  Sex: Male
  Weight: 81.6475 kg

DRUGS (7)
  1. NEURONTIN [Suspect]
     Indication: POST HERPETIC NEURALGIA
     Dosage: ORAL
     Route: 048
  2. GABAPENTIN [Suspect]
     Indication: POST HERPETIC NEURALGIA
     Dosage: 2700 MG, ORAL
     Route: 048
     Dates: start: 20060101
  3. AMITRIPTYLINE HCL [Suspect]
     Indication: POST HERPETIC NEURALGIA
  4. LIDODERM PATCH (LIDOCAINE HYDROCHLORIDE) [Concomitant]
  5. PROPAFENONE HCL [Concomitant]
  6. ZOCOR [Concomitant]
  7. VALSARTAN [Concomitant]

REACTIONS (4)
  - DRUG EFFECT DECREASED [None]
  - FEELING ABNORMAL [None]
  - PAIN [None]
  - SOMNOLENCE [None]
